FAERS Safety Report 13970621 (Version 1)
Quarter: 2017Q3

REPORT INFORMATION
  Report Type: Spontaneous
  Country: TR (occurrence: TR)
  Receive Date: 20170914
  Receipt Date: 20170914
  Transmission Date: 20171128
  Serious: Yes (Other)
  Sender: FDA-Public Use
  Company Number: TR-FRESENIUS KABI-FK201707670

PATIENT
  Age: 17 Year
  Sex: Male

DRUGS (1)
  1. ACETYLCYSTEINE (MANUFACTURER UNKNOWN) [Suspect]
     Active Substance: ACETYLCYSTEINE
     Indication: SUICIDE ATTEMPT
     Route: 042

REACTIONS (1)
  - Anaphylactic reaction [Unknown]
